FAERS Safety Report 4464365-7 (Version None)
Quarter: 2004Q3

REPORT INFORMATION
  Report Type: 
  Country: None (occurrence: None)
  Receive Date: 20040929
  Receipt Date: 20040909
  Transmission Date: 20050211
  Serious: Yes (Other)
  Sender: FDA-Public Use
  Company Number: US_040199700

PATIENT
  Sex: Male
  Weight: 118 kg

DRUGS (5)
  1. HUMALOG [Suspect]
     Dosage: 10 U/1 DAY
     Dates: start: 19980101
  2. HUMALOG [Suspect]
  3. HUMULIN N [Suspect]
     Dosage: 30 U/1 DAY
  4. HUMULIN L [Suspect]
     Dosage: 20 U
  5. LUPRON [Concomitant]

REACTIONS (18)
  - BACK DISORDER [None]
  - BLOOD GLUCOSE FLUCTUATION [None]
  - BLOOD GLUCOSE INCREASED [None]
  - CARCINOMA [None]
  - DEPRESSION [None]
  - DISEASE RECURRENCE [None]
  - DIZZINESS [None]
  - DRUG HYPERSENSITIVITY [None]
  - DRUG INTOLERANCE [None]
  - HYPERPHAGIA [None]
  - JOINT SWELLING [None]
  - MUSCLE CRAMP [None]
  - MUSCLE TIGHTNESS [None]
  - NEUROPATHY PERIPHERAL [None]
  - OEDEMA PERIPHERAL [None]
  - PAIN [None]
  - RADIATION INJURY [None]
  - WEIGHT DECREASED [None]
